FAERS Safety Report 19290775 (Version 1)
Quarter: 2021Q2

REPORT INFORMATION
  Report Type: Spontaneous
  Country: US (occurrence: US)
  Receive Date: 20210522
  Receipt Date: 20210522
  Transmission Date: 20210717
  Serious: No
  Sender: FDA-Public Use
  Company Number: US-009507513-2105USA003147

PATIENT
  Age: 50 Year
  Sex: Female

DRUGS (7)
  1. ESCITALOPRAM [Concomitant]
     Active Substance: ESCITALOPRAM OXALATE
  2. LAMOTRIGINE. [Concomitant]
     Active Substance: LAMOTRIGINE
  3. ALBUTEROL SULFATE. [Suspect]
     Active Substance: ALBUTEROL SULFATE
     Indication: ASTHMA
     Dosage: 2 TIMES PER MOUTH EVERY 4?6 HOURS AS NEEDED FOR RESCUE
     Route: 055
     Dates: start: 20210510
  4. CLONAZEPAM. [Concomitant]
     Active Substance: CLONAZEPAM
  5. BUPROPION. [Concomitant]
     Active Substance: BUPROPION
  6. ADDERALL [Concomitant]
     Active Substance: AMPHETAMINE ASPARTATE\AMPHETAMINE SULFATE\DEXTROAMPHETAMINE SACCHARATE\DEXTROAMPHETAMINE SULFATE
  7. ROTIN [ROSUVASTATIN CALCIUM] [Concomitant]

REACTIONS (3)
  - Poor quality device used [Unknown]
  - Product dose omission issue [Unknown]
  - Device defective [Unknown]

NARRATIVE: CASE EVENT DATE: 202105
